FAERS Safety Report 9353036 (Version 1)
Quarter: 2013Q2

REPORT INFORMATION
  Report Type: Spontaneous
  Country: US (occurrence: None)
  Receive Date: 20130617
  Receipt Date: 20130617
  Transmission Date: 20140414
  Serious: Yes (Hospitalization)
  Sender: FDA-Public Use
  Company Number: None

PATIENT
  Age: 83 Year
  Sex: Female

DRUGS (1)
  1. TRIBENZOR [Suspect]
     Indication: HYPERTENSION
     Dosage: ONE TABLET
     Route: 048
     Dates: start: 20121224, end: 20121226

REACTIONS (3)
  - Pain in extremity [None]
  - Erythema [None]
  - Musculoskeletal disorder [None]
